FAERS Safety Report 8125599 (Version 5)
Quarter: 2013Q1

REPORT INFORMATION
  Report Type: Report from Study
  Country: JP (occurrence: JP)
  Receive Date: 20110908
  Receipt Date: 20130322
  Transmission Date: 20140127
  Serious: Yes (Death)
  Sender: FDA-Public Use
  Company Number: JP-JNJFOC-20110902556

PATIENT
  Age: 73 Year
  Sex: Female
  Weight: 51 kg

DRUGS (16)
  1. GOLIMUMAB [Suspect]
     Indication: RHEUMATOID ARTHRITIS
     Route: 058
     Dates: start: 20090430, end: 20110728
  2. PLETAAL [Suspect]
     Indication: PROPHYLAXIS
     Route: 048
     Dates: start: 20101211, end: 20110829
  3. PLETAAL [Suspect]
     Indication: PROPHYLAXIS
     Route: 048
     Dates: start: 20101206, end: 20101210
  4. LORCAM [Concomitant]
     Indication: RHEUMATOID ARTHRITIS
     Route: 048
     Dates: end: 20101209
  5. LORCAM [Concomitant]
     Indication: RHEUMATOID ARTHRITIS
     Route: 048
     Dates: start: 20110107
  6. ULCERLMIN [Concomitant]
     Indication: PROPHYLAXIS AGAINST GASTROINTESTINAL ULCER
     Route: 048
     Dates: end: 20101209
  7. ULCERLMIN [Concomitant]
     Indication: PROPHYLAXIS AGAINST GASTROINTESTINAL ULCER
     Route: 048
     Dates: start: 20110107
  8. MOHRUS [Concomitant]
     Indication: RHEUMATOID ARTHRITIS
     Route: 061
     Dates: end: 20101209
  9. MOHRUS [Concomitant]
     Indication: RHEUMATOID ARTHRITIS
     Route: 061
     Dates: start: 20110107
  10. DILTIAZEM HYDROCHLORIDE [Concomitant]
     Indication: HYPERTENSION
     Route: 048
     Dates: start: 20101211, end: 20110829
  11. MYSLEE [Concomitant]
     Indication: INSOMNIA
     Route: 048
     Dates: start: 20101209, end: 20110829
  12. FERROUS FUMARATE [Concomitant]
     Indication: ANAEMIA
     Route: 048
     Dates: start: 20110728
  13. CLOSTRIDIUM BUTYRICUM [Concomitant]
     Route: 048
     Dates: start: 20110728, end: 20110817
  14. RINDERON-VG [Concomitant]
     Route: 061
  15. PASTARON [Concomitant]
     Route: 061
  16. SALAZOSULFAPYRIDINE [Concomitant]
     Route: 065

REACTIONS (1)
  - Brain stem haemorrhage [Fatal]
